FAERS Safety Report 6258299-5 (Version None)
Quarter: 2009Q3

REPORT INFORMATION
  Report Type: 
  Country: None (occurrence: None)
  Receive Date: 20090702
  Receipt Date: 20090702
  Transmission Date: 20100115
  Serious: No
  Sender: FDA-Public Use
  Company Number: None

PATIENT
  Age: 63 Year
  Sex: Female
  Weight: 80.7403 kg

DRUGS (1)
  1. CHANTIX [Suspect]
     Indication: SMOKING CESSATION THERAPY
     Dosage: AS DIRECTED PO
     Route: 048

REACTIONS (5)
  - AGITATION [None]
  - ANXIETY [None]
  - CRYING [None]
  - INSOMNIA [None]
  - PANIC ATTACK [None]
